FAERS Safety Report 4361276-2 (Version None)
Quarter: 2004Q2

REPORT INFORMATION
  Report Type: 
  Country: None (occurrence: None)
  Receive Date: 20040520
  Receipt Date: 20030310
  Transmission Date: 20050107
  Serious: Yes (Other)
  Sender: FDA-Public Use
  Company Number: NL-GLAXOSMITHKLINE-B0321215A

PATIENT
  Age: 35 Year
  Sex: Female

DRUGS (7)
  1. PAROXETINE HYDROCHLORIDE [Suspect]
     Dosage: 20MG VARIABLE DOSE
     Route: 065
  2. AUGMENTIN [Suspect]
     Dosage: 1TAB THREE TIMES PER DAY
  3. VENTOLIN [Suspect]
     Dosage: 400MCG TWICE PER DAY
  4. FLUTICASONE PROPIONATE [Suspect]
     Dosage: 500MCG TWICE PER DAY
     Dates: start: 20031203
  5. PREDNISONE [Concomitant]
     Dosage: 1TAB PER DAY
  6. BUDESONIDE [Concomitant]
     Dosage: 400MCG TWICE PER DAY
     Dates: start: 20031203
  7. SPINAL ANAESTHESIA [Concomitant]

REACTIONS (8)
  - ASTHMA [None]
  - CONDITION AGGRAVATED [None]
  - DRUG EXPOSURE DURING PREGNANCY [None]
  - INFLUENZA [None]
  - NERVOUSNESS [None]
  - PANIC REACTION [None]
  - PRE-ECLAMPSIA [None]
  - PROLONGED LABOUR [None]
